FAERS Safety Report 5397328-8 (Version None)
Quarter: 2007Q3

REPORT INFORMATION
  Report Type: 
  Country: None (occurrence: None)
  Receive Date: 20070726
  Receipt Date: 20070720
  Transmission Date: 20080115
  Serious: Yes (Other)
  Sender: FDA-Public Use
  Company Number: DE-RB-007484-07

PATIENT
  Sex: Male

DRUGS (1)
  1. SUBUTEX [Suspect]
     Indication: DRUG THERAPY
     Dosage: DOSAGE AND FREQUENCY UNKNOWN
     Route: 065

REACTIONS (1)
  - MANIA [None]
